FAERS Safety Report 4715825-2 (Version None)
Quarter: 2005Q3

REPORT INFORMATION
  Report Type: 
  Country: None (occurrence: None)
  Receive Date: 20050718
  Receipt Date: 20050622
  Transmission Date: 20060218
  Serious: Yes (Life-Threatening, Hospitalization)
  Sender: FDA-Public Use
  Company Number: 2005AP03435

PATIENT
  Age: 17069 Day
  Sex: Male

DRUGS (10)
  1. SEROQUEL [Suspect]
     Indication: MENTAL RETARDATION SEVERITY UNSPECIFIED
     Route: 048
     Dates: start: 20020125, end: 20021212
  2. SEROQUEL [Suspect]
     Route: 048
     Dates: start: 20021213, end: 20021220
  3. BROMPERIDOL [Concomitant]
     Indication: PSYCHIATRIC SYMPTOM
     Route: 048
  4. RISPERIDONE [Concomitant]
     Indication: MENTAL RETARDATION SEVERITY UNSPECIFIED
     Route: 048
     Dates: start: 20010625, end: 20021220
  5. ALEVIATIN [Concomitant]
     Indication: EPILEPSY
     Route: 048
     Dates: end: 20021220
  6. SELENICA R [Concomitant]
     Indication: EPILEPSY
     Route: 048
     Dates: end: 20021220
  7. AKINETON [Concomitant]
     Indication: MENTAL RETARDATION SEVERITY UNSPECIFIED
     Route: 048
     Dates: end: 20021220
  8. ARTANE [Concomitant]
     Indication: MENTAL RETARDATION SEVERITY UNSPECIFIED
     Dates: end: 20021220
  9. CHOLEXAMIN [Concomitant]
     Indication: CHILLBLAINS
     Dates: end: 20031220
  10. LENDORMIN [Concomitant]
     Indication: MENTAL RETARDATION SEVERITY UNSPECIFIED
     Route: 048
     Dates: end: 20021220

REACTIONS (2)
  - HYPOTHERMIA [None]
  - SHOCK [None]
